FAERS Safety Report 7640918-X (Version None)
Quarter: 2011Q3

REPORT INFORMATION
  Report Type: 
  Country: None (occurrence: None)
  Receive Date: 20110728
  Receipt Date: 20110728
  Transmission Date: 20111222
  Serious: No
  Sender: FDA-Public Use
  Company Number: None

PATIENT
  Age: 64 Year
  Sex: Female
  Weight: 86.182 kg

DRUGS (1)
  1. DILTIAZEM [Suspect]
     Indication: PALPITATIONS
     Dosage: ONE CAPSULE
     Route: 048
     Dates: start: 20100708, end: 20100723

REACTIONS (2)
  - PALPITATIONS [None]
  - VISUAL FIELD DEFECT [None]
